FAERS Safety Report 20978843 (Version 2)
Quarter: 2022Q2

REPORT INFORMATION
  Report Type: Spontaneous
  Country: US (occurrence: US)
  Receive Date: 20220619
  Receipt Date: 20220630
  Transmission Date: 20220720
  Serious: No
  Sender: FDA-Public Use
  Company Number: US-ORGANON-O2206USA001542

PATIENT
  Sex: Female

DRUGS (4)
  1. ZOCOR [Suspect]
     Active Substance: SIMVASTATIN
     Indication: Blood cholesterol increased
     Dosage: 40MG DAILY
     Route: 048
     Dates: start: 2006
  2. ZOCOR [Suspect]
     Active Substance: SIMVASTATIN
     Dosage: 80MG DAILY
     Route: 048
     Dates: end: 2018
  3. ZOCOR [Suspect]
     Active Substance: SIMVASTATIN
     Dosage: 40 (UNITS NOT PROVIDED)
     Route: 048
     Dates: start: 2013
  4. CRESTOR [Suspect]
     Active Substance: ROSUVASTATIN CALCIUM
     Dosage: 40 (UNITS NOT PROVIDED)
     Dates: end: 2018

REACTIONS (5)
  - Muscle spasticity [Not Recovered/Not Resolved]
  - Muscular weakness [Not Recovered/Not Resolved]
  - Tremor [Not Recovered/Not Resolved]
  - Nervousness [Not Recovered/Not Resolved]
  - Gait disturbance [Not Recovered/Not Resolved]
